FAERS Safety Report 11325040 (Version 6)
Quarter: 2017Q1

REPORT INFORMATION
  Report Type: Report from Study
  Country: CA (occurrence: CA)
  Receive Date: 20150730
  Receipt Date: 20170117
  Transmission Date: 20170428
  Serious: Yes (Other)
  Sender: FDA-Public Use
  Company Number: PHHY2015CA090208

PATIENT
  Age: 61 Year
  Sex: Female

DRUGS (1)
  1. SANDOSTATIN LAR DEPOT [Suspect]
     Active Substance: OCTREOTIDE ACETATE
     Indication: ACROMEGALY
     Dosage: 20 MG, QMO (ONCE A MONTH)
     Route: 030
     Dates: start: 20150519

REACTIONS (9)
  - Discomfort [Unknown]
  - Constipation [Unknown]
  - Haemorrhoids [Unknown]
  - Body temperature decreased [Unknown]
  - Blood pressure increased [Unknown]
  - Oesophageal obstruction [Unknown]
  - Breast mass [Unknown]
  - Pituitary tumour [Unknown]
  - Blood pressure systolic increased [Unknown]

NARRATIVE: CASE EVENT DATE: 2015
